FAERS Safety Report 20142197 (Version 1)
Quarter: 2021Q4

REPORT INFORMATION
  Report Type: Spontaneous
  Country: US (occurrence: None)
  Receive Date: 20211202
  Receipt Date: 20211202
  Transmission Date: 20220303
  Serious: No
  Sender: FDA-Public Use
  Company Number: None

PATIENT
  Age: 69 Year
  Sex: Female
  Weight: 72 kg

DRUGS (12)
  1. IBRANCE [Suspect]
     Active Substance: PALBOCICLIB
     Dosage: FREQUENCY : DAILY;?
     Route: 048
     Dates: start: 20211109
  2. ALBUTEROL SULFATE [Concomitant]
     Active Substance: ALBUTEROL SULFATE
  3. ANASTROZOLE [Concomitant]
     Active Substance: ANASTROZOLE
  4. FOLIC ACID [Concomitant]
     Active Substance: FOLIC ACID
  5. HUMALOG MIX75/25 [Concomitant]
     Active Substance: INSULIN LISPRO
  6. Tapazole 5mg [Concomitant]
  7. ZOFRAN [Concomitant]
     Active Substance: ONDANSETRON HYDROCHLORIDE
  8. Anoro Ellipta 62.5-25mcg/inh [Concomitant]
  9. Pepcid 40mg [Concomitant]
  10. XANAX [Concomitant]
     Active Substance: ALPRAZOLAM
  11. Tylenol 650mg [Concomitant]
  12. Advil 200mg [Concomitant]

REACTIONS (3)
  - Fatigue [None]
  - Pain in extremity [None]
  - Pain in extremity [None]

NARRATIVE: CASE EVENT DATE: 20211202
